FAERS Safety Report 24742783 (Version 1)
Quarter: 2024Q4

REPORT INFORMATION
  Report Type: Spontaneous
  Country: CN (occurrence: CN)
  Receive Date: 20241217
  Receipt Date: 20241217
  Transmission Date: 20250115
  Serious: Yes (Life-Threatening, Hospitalization)
  Sender: PERRIGO
  Company Number: CN-MLMSERVICE-20241204-PI278322-00120-1

PATIENT
  Age: 66 Year
  Sex: Male
  Weight: 60 kg

DRUGS (2)
  1. DICLOFENAC SODIUM [Suspect]
     Active Substance: DICLOFENAC SODIUM
     Indication: Arthralgia
     Dosage: 0.1 G, QD
     Route: 061
     Dates: start: 20221231, end: 20230103
  2. NIFEDIPINE [Concomitant]
     Active Substance: NIFEDIPINE
     Indication: Hypertension
     Dosage: LONG-TERM
     Route: 065

REACTIONS (2)
  - Immune thrombocytopenia [Recovered/Resolved]
  - Self-medication [Recovered/Resolved]

NARRATIVE: CASE EVENT DATE: 20221231
